FAERS Safety Report 5085435-9 (Version None)
Quarter: 2006Q3

REPORT INFORMATION
  Report Type: 
  Country: None (occurrence: None)
  Receive Date: 20060822
  Receipt Date: 20060811
  Transmission Date: 20061208
  Serious: Yes (Other)
  Sender: FDA-Public Use
  Company Number: PHEH2006US10323

PATIENT
  Sex: Female

DRUGS (1)
  1. ZELNORM [Suspect]
     Dates: start: 20050101

REACTIONS (3)
  - COLITIS ISCHAEMIC [None]
  - DIARRHOEA [None]
  - RECTAL HAEMORRHAGE [None]
